FAERS Safety Report 11679538 (Version 3)
Quarter: 2015Q4

REPORT INFORMATION
  Report Type: Spontaneous
  Country: US (occurrence: US)
  Receive Date: 20151027
  Receipt Date: 20151110
  Transmission Date: 20160304
  Serious: No
  Sender: FDA-Public Use
  Company Number: US-ELI_LILLY_AND_COMPANY-US201011002279

PATIENT
  Sex: Female

DRUGS (2)
  1. FORTEO [Suspect]
     Active Substance: TERIPARATIDE
     Dosage: 20 UG, DAILY (1/D)
  2. FORTEO [Suspect]
     Active Substance: TERIPARATIDE
     Indication: OSTEOPOROSIS
     Dosage: 20 UG, DAILY (1/D)
     Dates: start: 20101015

REACTIONS (10)
  - Pain [Unknown]
  - Neck pain [Unknown]
  - Injection site haemorrhage [Unknown]
  - Overdose [Unknown]
  - Blood disorder [Unknown]
  - Back pain [Unknown]
  - Pain in extremity [Unknown]
  - Injection site erythema [Unknown]
  - Arthralgia [Unknown]
  - Injection site bruising [Not Recovered/Not Resolved]
